FAERS Safety Report 6692007-9 (Version None)
Quarter: 2010Q2

REPORT INFORMATION
  Report Type: 
  Country: None (occurrence: None)
  Receive Date: 20100422
  Receipt Date: 20100414
  Transmission Date: 20101027
  Serious: Yes (Death, Hospitalization, Other)
  Sender: FDA-Public Use
  Company Number: US-AMGEN-QUU398972

PATIENT
  Sex: Female
  Weight: 79 kg

DRUGS (10)
  1. NPLATE [Suspect]
     Indication: IDIOPATHIC THROMBOCYTOPENIC PURPURA
     Route: 058
     Dates: start: 20081006, end: 20090312
  2. PROTONIX [Concomitant]
  3. PREDNISONE [Concomitant]
  4. LASIX [Concomitant]
  5. LEVOTHYROXINE [Concomitant]
  6. LANTUS [Concomitant]
  7. AMBIEN [Concomitant]
  8. NOVOLOG [Concomitant]
  9. TYLENOL PM [Concomitant]
  10. K-DUR [Concomitant]

REACTIONS (9)
  - ATRIAL FIBRILLATION [None]
  - CARDIAC FAILURE CONGESTIVE [None]
  - HYPOTENSION [None]
  - MALNUTRITION [None]
  - PLEURAL EFFUSION [None]
  - PNEUMONIA [None]
  - PYELONEPHRITIS [None]
  - RESPIRATORY FAILURE [None]
  - URINARY TRACT INFECTION [None]
